FAERS Safety Report 11817497 (Version 2)
Quarter: 2019Q2

REPORT INFORMATION
  Report Type: Spontaneous
  Country: US (occurrence: US)
  Receive Date: 20151210
  Receipt Date: 20190614
  Transmission Date: 20190711
  Serious: No
  Sender: FDA-Public Use
  Company Number: US-JNJFOC-20151102600

PATIENT
  Age: 11 Year
  Sex: Male

DRUGS (13)
  1. RISPERDAL [Suspect]
     Active Substance: RISPERIDONE
     Indication: BIPOLAR DISORDER
     Route: 048
     Dates: end: 2010
  2. RISPERDAL [Suspect]
     Active Substance: RISPERIDONE
     Indication: ATTENTION DEFICIT/HYPERACTIVITY DISORDER
     Route: 048
     Dates: start: 200902
  3. RISPERDAL [Suspect]
     Active Substance: RISPERIDONE
     Indication: ATTENTION DEFICIT/HYPERACTIVITY DISORDER
     Route: 048
     Dates: start: 200802
  4. DEPAKOTE [Suspect]
     Active Substance: DIVALPROEX SODIUM
     Indication: PRODUCT USED FOR UNKNOWN INDICATION
     Route: 048
  5. RISPERDAL [Suspect]
     Active Substance: RISPERIDONE
     Indication: BIPOLAR DISORDER
     Dosage: 0.25 MG - 0.5 MG
     Route: 048
     Dates: start: 200704, end: 200712
  6. RISPERDAL [Suspect]
     Active Substance: RISPERIDONE
     Indication: BIPOLAR DISORDER
     Route: 048
     Dates: start: 200605
  7. RISPERDAL [Suspect]
     Active Substance: RISPERIDONE
     Indication: ATTENTION DEFICIT/HYPERACTIVITY DISORDER
     Route: 048
     Dates: start: 200605
  8. RISPERDAL [Suspect]
     Active Substance: RISPERIDONE
     Indication: ATTENTION DEFICIT/HYPERACTIVITY DISORDER
     Dosage: 0.25 MG - 0.5 MG
     Route: 048
     Dates: start: 200704, end: 200712
  9. RISPERDAL [Suspect]
     Active Substance: RISPERIDONE
     Indication: ATTENTION DEFICIT/HYPERACTIVITY DISORDER
     Route: 048
     Dates: start: 200608
  10. RISPERDAL [Suspect]
     Active Substance: RISPERIDONE
     Indication: BIPOLAR DISORDER
     Route: 048
     Dates: start: 200608
  11. RISPERDAL [Suspect]
     Active Substance: RISPERIDONE
     Indication: BIPOLAR DISORDER
     Route: 048
     Dates: start: 200902
  12. RISPERDAL [Suspect]
     Active Substance: RISPERIDONE
     Indication: BIPOLAR DISORDER
     Route: 048
     Dates: start: 200802
  13. RISPERDAL [Suspect]
     Active Substance: RISPERIDONE
     Indication: ATTENTION DEFICIT/HYPERACTIVITY DISORDER
     Route: 048
     Dates: end: 2010

REACTIONS (2)
  - Abnormal weight gain [Unknown]
  - Gynaecomastia [Unknown]

NARRATIVE: CASE EVENT DATE: 200606
